FAERS Safety Report 5790301-7 (Version None)
Quarter: 2008Q2

REPORT INFORMATION
  Report Type: 
  Country: None (occurrence: None)
  Receive Date: 20080626
  Receipt Date: 20080423
  Transmission Date: 20081010
  Serious: No
  Sender: FDA-Public Use
  Company Number: A0707803A

PATIENT
  Age: 52 Year
  Sex: Female

DRUGS (1)
  1. ALLI [Suspect]
     Indication: DRUG USE FOR UNKNOWN INDICATION

REACTIONS (5)
  - DYSPEPSIA [None]
  - FEAR [None]
  - HOT FLUSH [None]
  - INSOMNIA [None]
  - WEIGHT INCREASED [None]
